FAERS Safety Report 14292332 (Version 16)
Quarter: 2019Q3

REPORT INFORMATION
  Report Type: Spontaneous
  Country: DE (occurrence: DE)
  Receive Date: 20171215
  Receipt Date: 20190925
  Transmission Date: 20191004
  Serious: Yes (Life-Threatening, Hospitalization, Other)
  Sender: FDA-Public Use
  Company Number: DE-009507513-1712DEU004650

PATIENT
  Sex: Male
  Weight: 86 kg

DRUGS (5)
  1. DEKRISTOL [Concomitant]
     Active Substance: CHOLECALCIFEROL
  2. GABAPENTIN. [Concomitant]
     Active Substance: GABAPENTIN
     Dosage: 500 MG 2X1
  3. FLUOXETINE [Suspect]
     Active Substance: FLUOXETINE HYDROCHLORIDE
     Dosage: UNK
     Route: 048
  4. PROPECIA [Suspect]
     Active Substance: FINASTERIDE
     Indication: ALOPECIA
     Dosage: 1 MG, DAILY
     Route: 048
     Dates: start: 200610, end: 201211
  5. MINERALS (UNSPECIFIED) (+) VITAMINS (UNSPECIFIED) [Concomitant]
     Active Substance: MINERALS\VITAMINS

REACTIONS (114)
  - Malnutrition [Unknown]
  - Blood luteinising hormone decreased [Not Recovered/Not Resolved]
  - Dermal cyst [Unknown]
  - Myopathy [Not Recovered/Not Resolved]
  - Fall [Unknown]
  - Nervousness [Unknown]
  - Blood bilirubin unconjugated increased [Unknown]
  - Disorientation [Unknown]
  - Muscle twitching [Not Recovered/Not Resolved]
  - Muscle spasms [Unknown]
  - Aggression [Unknown]
  - Bronchitis [Unknown]
  - Arthralgia [Unknown]
  - Glossodynia [Unknown]
  - Pollakiuria [Unknown]
  - Metabolic acidosis [Recovered/Resolved]
  - Atrial fibrillation [Recovered/Resolved]
  - Seborrhoeic keratosis [Unknown]
  - Atrioventricular block first degree [Unknown]
  - Blood creatine phosphokinase increased [Not Recovered/Not Resolved]
  - Blood immunoglobulin M decreased [Unknown]
  - Fatigue [Not Recovered/Not Resolved]
  - Alopecia [Unknown]
  - Peripheral venous disease [Unknown]
  - Laryngitis [Unknown]
  - Tinnitus [Unknown]
  - Aspergillus infection [Unknown]
  - Haematochezia [Unknown]
  - Schizophrenia [Unknown]
  - Supraventricular tachycardia [Recovered/Resolved]
  - Cortisol increased [Unknown]
  - Abnormal loss of weight [Not Recovered/Not Resolved]
  - Aspartate aminotransferase increased [Not Recovered/Not Resolved]
  - Creatinine urine decreased [Unknown]
  - Hypothalamo-pituitary disorder [Unknown]
  - Lymphocyte percentage increased [Unknown]
  - Psychotic disorder [Unknown]
  - Fracture [Unknown]
  - Pain in extremity [Unknown]
  - Feeling hot [Unknown]
  - Cachexia [Unknown]
  - Infection [Unknown]
  - Leukopenia [Recovering/Resolving]
  - Suicidal ideation [Unknown]
  - Myotonic dystrophy [Unknown]
  - Cognitive disorder [Not Recovered/Not Resolved]
  - Rhinitis allergic [Unknown]
  - Tinnitus [Unknown]
  - Rhinitis allergic [Unknown]
  - Memory impairment [Unknown]
  - Drug withdrawal syndrome [Not Recovered/Not Resolved]
  - Clostridial infection [Unknown]
  - Irritable bowel syndrome [Unknown]
  - Depression [Unknown]
  - Somatic symptom disorder [Unknown]
  - Blood bilirubin increased [Not Recovered/Not Resolved]
  - Inflammatory bowel disease [Not Recovered/Not Resolved]
  - Anhedonia [Unknown]
  - Blood lactate dehydrogenase increased [Not Recovered/Not Resolved]
  - Splenomegaly [Unknown]
  - Bundle branch block right [Unknown]
  - Sinusitis [Unknown]
  - Bone disorder [Unknown]
  - Alpha 2 globulin decreased [Unknown]
  - Inner ear disorder [Unknown]
  - Gynaecomastia [Unknown]
  - Pharyngitis [Unknown]
  - Sinusitis [Unknown]
  - Hyperacusis [Unknown]
  - Sinusitis [Unknown]
  - Pharyngitis [Unknown]
  - Contusion [Unknown]
  - Muscular weakness [Unknown]
  - Aphasia [Unknown]
  - Mucosal dryness [Unknown]
  - Viral acanthoma [Unknown]
  - Decreased appetite [Unknown]
  - Pericardial effusion [Unknown]
  - Hand dermatitis [Unknown]
  - Multiple allergies [Unknown]
  - Urine calcium/creatinine ratio increased [Unknown]
  - Blood alkaline phosphatase increased [Not Recovered/Not Resolved]
  - Blood immunoglobulin A decreased [Unknown]
  - Blood immunoglobulin G decreased [Unknown]
  - Dyspepsia [Unknown]
  - Nocturia [Unknown]
  - Laryngitis [Unknown]
  - Dysphemia [Unknown]
  - Abdominal pain [Unknown]
  - Pituitary tumour benign [Recovered/Resolved]
  - Hypogonadism male [Not Recovered/Not Resolved]
  - Mental disorder [Unknown]
  - Androgen insensitivity syndrome [Unknown]
  - Faecal calprotectin [Unknown]
  - Urine phosphorus decreased [Unknown]
  - Prostatic calcification [Unknown]
  - Migraine [Unknown]
  - Night sweats [Not Recovered/Not Resolved]
  - Testicular microlithiasis [Unknown]
  - Polymyositis [Unknown]
  - Borderline personality disorder [Unknown]
  - Dementia [Unknown]
  - Pharyngitis [Unknown]
  - Lymphocytosis [Unknown]
  - Tetany [Unknown]
  - Dehydroepiandrosterone decreased [Unknown]
  - Sex hormone binding globulin decreased [Unknown]
  - Free androgen index decreased [Unknown]
  - Toxicity to various agents [Not Recovered/Not Resolved]
  - Oedema peripheral [Unknown]
  - Conjunctivitis [Unknown]
  - Sinusitis [Unknown]
  - Gingival recession [Unknown]
  - Night sweats [Unknown]

NARRATIVE: CASE EVENT DATE: 20061111
